FAERS Safety Report 10052213 (Version 1)
Quarter: 2014Q2

REPORT INFORMATION
  Report Type: Spontaneous
  Country: IE (occurrence: IE)
  Receive Date: 20140402
  Receipt Date: 20140402
  Transmission Date: 20141212
  Serious: Yes (Other)
  Sender: FDA-Public Use
  Company Number: IE-AMGEN-IRLSP2014021815

PATIENT
  Age: 76 Year
  Sex: Female

DRUGS (4)
  1. PROLIA [Suspect]
     Indication: OSTEOPOROSIS
     Dosage: 60 MG, Q6MO
     Route: 065
     Dates: start: 2013
  2. ELTROXIN [Concomitant]
     Dosage: UNK
     Route: 065
  3. KALCIPOS [Concomitant]
     Dosage: UNK
     Route: 065
  4. SEEBRI [Concomitant]
     Dosage: UNK, INHALER
     Route: 065

REACTIONS (2)
  - Tooth disorder [Unknown]
  - Post procedural complication [Unknown]
